FAERS Safety Report 8954207 (Version 3)
Quarter: 2013Q1

REPORT INFORMATION
  Report Type: Spontaneous
  Country: US (occurrence: US)
  Receive Date: 20121207
  Receipt Date: 20130123
  Transmission Date: 20140127
  Serious: Yes (Other)
  Sender: FDA-Public Use
  Company Number: US-JNJFOC-20121201081

PATIENT
  Age: 48 Year
  Sex: Female

DRUGS (3)
  1. NICOTINE POLACRILEX GUM 4 MG ORIGINAL [Suspect]
     Indication: SMOKING CESSATION THERAPY
     Route: 002
  2. NICOTINE POLACRILEX GUM 4 MG ORIGINAL [Suspect]
     Indication: SMOKING CESSATION THERAPY
     Dosage: 4 MG GUM, 14 PIECES A DAY
     Route: 002
  3. WELLBUTRIN [Suspect]
     Indication: SMOKING CESSATION THERAPY
     Route: 048

REACTIONS (5)
  - Nicotine dependence [Not Recovered/Not Resolved]
  - Intentional drug misuse [Unknown]
  - Agitation [Unknown]
  - Irritability [Unknown]
  - Anger [Unknown]
